FAERS Safety Report 6668575-X (Version None)
Quarter: 2010Q2

REPORT INFORMATION
  Report Type: 
  Country: None (occurrence: None)
  Receive Date: 20100401
  Receipt Date: 20100121
  Transmission Date: 20101027
  Serious: Yes (Hospitalization)
  Sender: FDA-Public Use
  Company Number: FR-GUERBET-20100012

PATIENT
  Age: 42 Year
  Sex: Female

DRUGS (4)
  1. DOTAREM: / GADOTERIC ACID [Suspect]
     Indication: NUCLEAR MAGNETIC RESONANCE IMAGING
     Dosage: DOSAGE: 15, ML MILLILITRE(S), 1, 1, TOTAL INTRAVENOUS
     Route: 042
     Dates: start: 20091214, end: 20091214
  2. MINESSE: / GESTODENE - ETHINYLESTRADIOL [Suspect]
     Indication: CONTRACEPTION
     Dosage: DOSAGE: 1, DF DOSAGE FORM, 1, 1, DAYS ORAL
     Route: 048
  3. AERIUS 5 MG: ORAL / DESLORATADINE [Concomitant]
  4. CHLORHEXIDINE ACETATE: CUTANEOUS / CHLORHEXIDINE ACETATE [Concomitant]

REACTIONS (7)
  - ANGIOEDEMA [None]
  - BLOOD PRESSURE SYSTOLIC INCREASED [None]
  - BODY TEMPERATURE INCREASED [None]
  - DRUG HYPERSENSITIVITY [None]
  - DYSPHAGIA [None]
  - DYSPHONIA [None]
  - HEART RATE INCREASED [None]
